FAERS Safety Report 14919684 (Version 1)
Quarter: 2018Q2

REPORT INFORMATION
  Report Type: Spontaneous
  Country: US (occurrence: US)
  Receive Date: 20180521
  Receipt Date: 20180521
  Transmission Date: 20180711
  Serious: No
  Sender: FDA-Public Use
  Company Number: US-NEOS THERAPEUTICS, LP-2018NEO00047

PATIENT
  Sex: Female
  Weight: 56.69 kg

DRUGS (4)
  1. UNSPECIFIED MEDICATIONS [Concomitant]
     Active Substance: UNSPECIFIED INGREDIENT
  2. ADZENYS XR-ODT [Suspect]
     Active Substance: AMPHETAMINE
     Indication: POST-TRAUMATIC STRESS DISORDER
     Dosage: 37.6 MG, 1X/DAY
     Route: 048
     Dates: start: 201801
  3. ADZENYS XR-ODT [Suspect]
     Active Substance: AMPHETAMINE
     Indication: ATTENTION DEFICIT/HYPERACTIVITY DISORDER
  4. UNSPECIFIED BIRTH CONTROL [Concomitant]
     Active Substance: UNSPECIFIED INGREDIENT

REACTIONS (2)
  - Autoimmune disorder [Unknown]
  - Rash pustular [Not Recovered/Not Resolved]
